FAERS Safety Report 16758012 (Version 1)
Quarter: 2019Q3

REPORT INFORMATION
  Report Type: Spontaneous
  Country: US (occurrence: US)
  Receive Date: 20190830
  Receipt Date: 20190830
  Transmission Date: 20191005
  Serious: Yes (Hospitalization, Disabling)
  Sender: FDA-Public Use
  Company Number: US-ROCHE-2388795

PATIENT
  Age: 40 Year
  Sex: Female

DRUGS (2)
  1. CELLCEPT [Suspect]
     Active Substance: MYCOPHENOLATE MOFETIL\MYCOPHENOLATE MOFETIL HYDROCHLORIDE
     Indication: NEUROMYELITIS OPTICA SPECTRUM DISORDER
     Route: 065
  2. RITUXAN [Suspect]
     Active Substance: RITUXIMAB
     Indication: MULTIPLE SCLEROSIS
     Route: 041

REACTIONS (7)
  - Deep vein thrombosis [Unknown]
  - Neuralgia [Unknown]
  - Anti-aquaporin-4 antibody positive [Unknown]
  - Off label use [Unknown]
  - Bladder dysfunction [Unknown]
  - Muscle spasticity [Unknown]
  - Intentional product use issue [Unknown]
